FAERS Safety Report 23415773 (Version 1)
Quarter: 2024Q1

REPORT INFORMATION
  Report Type: Spontaneous
  Country: ES (occurrence: ES)
  Receive Date: 20240118
  Receipt Date: 20240118
  Transmission Date: 20240410
  Serious: Yes (Life-Threatening, Hospitalization, Other)
  Sender: FDA-Public Use
  Company Number: None

PATIENT

DRUGS (3)
  1. BENLYSTA [Suspect]
     Active Substance: BELIMUMAB
     Indication: Systemic lupus erythematosus
     Dosage: 200 MG, Q3W (200 MG EVERY 3 WEEKS)
     Route: 058
     Dates: start: 20181023, end: 20231210
  2. TRUXIMA [Concomitant]
     Active Substance: RITUXIMAB-ABBS
     Indication: Systemic lupus erythematosus
     Dosage: 1 G (1G TWO DOSES IN WEEKS 0 AND 2, HAS RECEIVED 4 CYCLES (SEPT 2019, NOV 2020, NOV 2021, MAY 2022))
     Route: 042
     Dates: start: 20190930, end: 20220511
  3. HYDROXYCHLOROQUINE SULFATE [Concomitant]
     Active Substance: HYDROXYCHLOROQUINE SULFATE
     Indication: Systemic lupus erythematosus
     Dosage: 1 DF, QD (1 EVERY 24 HOURS)
     Route: 048
     Dates: start: 20140325

REACTIONS (3)
  - Pseudomonal bacteraemia [Recovered/Resolved]
  - Agranulocytosis [Recovered/Resolved]
  - Pyrexia [Recovered/Resolved]

NARRATIVE: CASE EVENT DATE: 20231230
